FAERS Safety Report 9261670 (Version 2)
Quarter: 2013Q2

REPORT INFORMATION
  Report Type: Spontaneous
  Country: FR (occurrence: FR)
  Receive Date: 20130429
  Receipt Date: 20130515
  Transmission Date: 20140414
  Serious: Yes (Hospitalization)
  Sender: FDA-Public Use
  Company Number: FR-PFIZER INC-2013126229

PATIENT
  Age: 33 Year
  Sex: Male

DRUGS (7)
  1. ARACYTINE [Suspect]
     Dosage: UNK (SECOND CONSOLIDATION COURSE)
     Dates: start: 20130409, end: 20130409
  2. ZELITREX [Suspect]
     Dosage: UNK
     Dates: start: 20130408, end: 20130409
  3. NOXAFIL [Suspect]
     Dosage: UNK
     Dates: start: 20130408, end: 20130409
  4. EMEND [Suspect]
     Dosage: UNK
     Dates: start: 20130409, end: 20130409
  5. METOCLOPRAMIDE [Suspect]
     Dosage: UNK
     Dates: start: 20130409, end: 20130409
  6. CHIBRO-CADRON [Suspect]
     Dosage: UNK
     Dates: start: 20130409, end: 20130409
  7. SOLU-MEDROL [Concomitant]
     Dosage: UNK
     Dates: start: 20130409

REACTIONS (2)
  - Face oedema [Recovered/Resolved]
  - Urticaria [Recovered/Resolved]
